FAERS Safety Report 5238314-8 (Version None)
Quarter: 2007Q1

REPORT INFORMATION
  Report Type: 
  Country: None (occurrence: None)
  Receive Date: 20070215
  Receipt Date: 20070208
  Transmission Date: 20070707
  Serious: Yes (Hospitalization, Other)
  Sender: FDA-Public Use
  Company Number: DE-ELI_LILLY_AND_COMPANY-DE200702001732

PATIENT
  Sex: Male

DRUGS (4)
  1. ZYPREXA [Suspect]
     Indication: SCHIZOPHRENIA
     Dosage: 30 MG, DAILY (1/D)
     Route: 048
     Dates: start: 20010101
  2. NEUROCIL [Concomitant]
     Dosage: 75 MG, UNK
  3. ORFIRIL LONG [Concomitant]
     Dosage: 1600 MG, UNK
  4. DYSURGAL [Concomitant]

REACTIONS (6)
  - CONTUSION [None]
  - DIABETES MELLITUS NON-INSULIN-DEPENDENT [None]
  - DIABETIC KETOACIDOSIS [None]
  - PLEURISY [None]
  - PNEUMONIA [None]
  - PRESCRIBED OVERDOSE [None]
